FAERS Safety Report 16442221 (Version 1)
Quarter: 2019Q2

REPORT INFORMATION
  Report Type: Report from Study
  Country: None (occurrence: US)
  Receive Date: 20190617
  Receipt Date: 20190617
  Transmission Date: 20190711
  Serious: No
  Sender: FDA-Public Use
  Company Number: US-US WORLDMEDS, LLC-USW201902-000317

PATIENT
  Age: 60 Year
  Sex: Male

DRUGS (5)
  1. GOCOVRI [Concomitant]
     Active Substance: AMANTADINE
  2. APOKYN [Suspect]
     Active Substance: APOMORPHINE HYDROCHLORIDE
     Indication: PARKINSON^S DISEASE
     Dates: start: 201703
  3. RYTARY [Concomitant]
     Active Substance: CARBIDOPA\LEVODOPA
  4. XADAGO [Concomitant]
     Active Substance: SAFINAMIDE MESYLATE
  5. SINEMET [Concomitant]
     Active Substance: CARBIDOPA\LEVODOPA

REACTIONS (3)
  - Freezing phenomenon [Unknown]
  - Dystonia [Unknown]
  - Dyskinesia [Unknown]

NARRATIVE: CASE EVENT DATE: 20190412
